FAERS Safety Report 12441033 (Version 1)
Quarter: 2016Q2

REPORT INFORMATION
  Report Type: Spontaneous
  Country: US (occurrence: US)
  Receive Date: 20160607
  Receipt Date: 20160607
  Transmission Date: 20160815
  Serious: No
  Sender: FDA-Public Use
  Company Number: US-ASTRAZENECA-2016SE41710

PATIENT
  Age: 52 Year
  Sex: Female

DRUGS (1)
  1. ZOLMITRIPTAN. [Suspect]
     Active Substance: ZOLMITRIPTAN
     Indication: MIGRAINE
     Dosage: 5 MG DAILY, GENERIC
     Route: 048
     Dates: start: 2015

REACTIONS (2)
  - Headache [Recovered/Resolved]
  - Drug ineffective [Unknown]
